FAERS Safety Report 19000546 (Version 2)
Quarter: 2021Q1

REPORT INFORMATION
  Report Type: Spontaneous
  Country: US (occurrence: US)
  Receive Date: 20210312
  Receipt Date: 20210330
  Transmission Date: 20210420
  Serious: Yes (Hospitalization)
  Sender: FDA-Public Use
  Company Number: US-SCIEGEN-2021SCILIT00224

PATIENT
  Age: 68 Year
  Sex: Female

DRUGS (3)
  1. ZICONOTIDE [Suspect]
     Active Substance: ZICONOTIDE
     Dosage: MAX DOSE
     Route: 065
  2. FLUOXETINE [Suspect]
     Active Substance: FLUOXETINE HYDROCHLORIDE
     Indication: DEPRESSION
     Route: 065
  3. ZICONOTIDE [Suspect]
     Active Substance: ZICONOTIDE
     Indication: BACK PAIN
     Dosage: WITH AN INCREASE OF 1.2MCG/DAY
     Route: 065

REACTIONS (4)
  - Drug interaction [Unknown]
  - Asthenia [Recovered/Resolved]
  - Confusional state [Recovered/Resolved]
  - Nystagmus [Recovered/Resolved]
